FAERS Safety Report 8440420-1 (Version None)
Quarter: 2012Q2

REPORT INFORMATION
  Report Type: 
  Country: None (occurrence: None)
  Receive Date: 20120615
  Receipt Date: 20120611
  Transmission Date: 20120825
  Serious: No
  Sender: FDA-Public Use
  Company Number: US-PFIZER INC-2012124455

PATIENT
  Sex: Male
  Weight: 79 kg

DRUGS (7)
  1. DIOVAN [Concomitant]
     Dosage: UNK
  2. GABAPENTIN [Suspect]
     Indication: POST HERPETIC NEURALGIA
     Dosage: 600 MG, 2X/DAY
     Route: 048
     Dates: start: 20120501, end: 20120523
  3. ASPIRIN [Concomitant]
     Dosage: 81 MG
  4. CRESTOR [Concomitant]
     Dosage: UNK
  5. TRIAMTERENE AND HYDROCHLOROTHIAZIDE [Concomitant]
     Indication: HYPERTENSION
     Dosage: 25/37.5 MG, DAILY
  6. GABAPENTIN [Suspect]
     Indication: HERPES ZOSTER
     Dosage: 600 MG, DAILY AT NOON
     Route: 048
     Dates: start: 20120516, end: 20120501
  7. MAXZIDE [Concomitant]
     Dosage: UNK

REACTIONS (2)
  - GOUT [None]
  - OEDEMA PERIPHERAL [None]
